FAERS Safety Report 8185241-2 (Version None)
Quarter: 2012Q1

REPORT INFORMATION
  Report Type: 
  Country: None (occurrence: None)
  Receive Date: 20120305
  Receipt Date: 20120224
  Transmission Date: 20120608
  Serious: Yes (Other)
  Sender: FDA-Public Use
  Company Number: PHHY2012TR016216

PATIENT
  Age: 30 Year
  Sex: Male

DRUGS (1)
  1. ETODOLAC [Suspect]
     Dosage: 750 MG, UNK
     Route: 048

REACTIONS (10)
  - HERPES VIRUS INFECTION [None]
  - RASH ERYTHEMATOUS [None]
  - DERMATITIS BULLOUS [None]
  - PENILE ULCERATION [None]
  - GENITAL ULCERATION [None]
  - AUTOIMMUNE THYROIDITIS [None]
  - SCAB [None]
  - MUCOSAL EROSION [None]
  - BURNING SENSATION [None]
  - MOUTH ULCERATION [None]
